FAERS Safety Report 5507699-7 (Version None)
Quarter: 2007Q4

REPORT INFORMATION
  Report Type: 
  Country: None (occurrence: None)
  Receive Date: 20071106
  Receipt Date: 20071030
  Transmission Date: 20080405
  Serious: Yes (Hospitalization)
  Sender: FDA-Public Use
  Company Number: B0493794A

PATIENT
  Age: 62 Year
  Sex: Female

DRUGS (2)
  1. ZOVIRAX [Suspect]
     Indication: PROPHYLAXIS
     Route: 048
     Dates: start: 20070923, end: 20070925
  2. ZOMIGORO [Concomitant]

REACTIONS (8)
  - ABDOMINAL PAIN UPPER [None]
  - ALANINE AMINOTRANSFERASE INCREASED [None]
  - ASPARTATE AMINOTRANSFERASE INCREASED [None]
  - BLOOD LACTATE DEHYDROGENASE INCREASED [None]
  - GAMMA-GLUTAMYLTRANSFERASE INCREASED [None]
  - HEPATOCELLULAR DAMAGE [None]
  - JAUNDICE [None]
  - OCULAR ICTERUS [None]
